FAERS Safety Report 10224144 (Version 4)
Quarter: 2014Q4

REPORT INFORMATION
  Report Type: Spontaneous
  Country: JP (occurrence: JP)
  Receive Date: 20140609
  Receipt Date: 20141021
  Transmission Date: 20150528
  Serious: Yes (Other)
  Sender: FDA-Public Use
  Company Number: PHHY2014JP069662

PATIENT
  Age: 72 Year
  Sex: Female
  Weight: 38 kg

DRUGS (3)
  1. ZOMETA [Suspect]
     Active Substance: ZOLEDRONIC ACID
     Indication: METASTASES TO BONE
  2. ZOMETA [Suspect]
     Active Substance: ZOLEDRONIC ACID
     Indication: THYROID CANCER
     Dosage: 4 MG, DAILY
     Route: 041
     Dates: start: 200906, end: 201212
  3. RANMARK [Suspect]
     Active Substance: DENOSUMAB
     Indication: METASTASES TO BONE
     Dosage: 120 MG, DAILY
     Route: 058
     Dates: start: 201212

REACTIONS (9)
  - Osteonecrosis of jaw [Not Recovered/Not Resolved]
  - Inflammation [Unknown]
  - Sinusitis [Unknown]
  - Exposed bone in jaw [Unknown]
  - Erythema [Unknown]
  - Gingivitis [Unknown]
  - Corynebacterium infection [Unknown]
  - Tenderness [Unknown]
  - Swelling [Unknown]

NARRATIVE: CASE EVENT DATE: 201306
